FAERS Safety Report 25543071 (Version 1)
Quarter: 2025Q3

REPORT INFORMATION
  Report Type: Spontaneous
  Country: US (occurrence: US)
  Receive Date: 20250711
  Receipt Date: 20250711
  Transmission Date: 20251020
  Serious: No
  Sender: GLENMARK
  Company Number: US-GLENMARK PHARMACEUTICALS-2024GMK092112

PATIENT

DRUGS (3)
  1. ADAPALENE [Suspect]
     Active Substance: ADAPALENE
     Indication: Skin wrinkling
     Route: 065
  2. VITAMIN C [Suspect]
     Active Substance: ASCORBIC ACID
     Indication: Skin wrinkling
     Route: 065
  3. RETINOL [Suspect]
     Active Substance: RETINOL
     Indication: Skin wrinkling
     Route: 065

REACTIONS (3)
  - Rash [Unknown]
  - Erythema [Unknown]
  - Drug ineffective for unapproved indication [Unknown]
